FAERS Safety Report 10695086 (Version 1)
Quarter: 2015Q1

REPORT INFORMATION
  Report Type: Spontaneous
  Country: US (occurrence: None)
  Receive Date: 20150105
  Receipt Date: 20150105
  Transmission Date: 20150721
  Serious: Yes (Disabling)
  Sender: FDA-Public Use
  Company Number: 2014-21066

PATIENT
  Age: 83 Year
  Sex: Male
  Weight: 85.3 kg

DRUGS (1)
  1. EYLEA [Suspect]
     Active Substance: AFLIBERCEPT
     Indication: AGE-RELATED MACULAR DEGENERATION
     Route: 031
     Dates: start: 20140821, end: 20140922

REACTIONS (3)
  - Visual acuity reduced [None]
  - Eye pain [None]
  - Drug ineffective [None]

NARRATIVE: CASE EVENT DATE: 20140822
